FAERS Safety Report 5312580-2 (Version None)
Quarter: 2007Q2

REPORT INFORMATION
  Report Type: 
  Country: None (occurrence: None)
  Receive Date: 20070430
  Receipt Date: 20070125
  Transmission Date: 20071010
  Serious: No
  Sender: FDA-Public Use
  Company Number: 2007UW00937

PATIENT
  Age: 77 Year
  Sex: Female
  Weight: 61.2 kg

DRUGS (5)
  1. NEXIUM [Suspect]
     Indication: GASTROOESOPHAGEAL REFLUX DISEASE
     Dosage: ONCE  A DAY
     Route: 048
     Dates: start: 20000101
  2. NEXIUM [Suspect]
     Route: 048
     Dates: start: 20050101
  3. CENTRUM [Concomitant]
  4. CALCIUM CHLORIDE [Concomitant]
  5. CLOBETASOL PROPIONATE [Concomitant]
     Route: 061

REACTIONS (2)
  - DRUG ERUPTION [None]
  - DRUG INEFFECTIVE [None]
